FAERS Safety Report 5237690-X (Version None)
Quarter: 2007Q1

REPORT INFORMATION
  Report Type: 
  Country: None (occurrence: None)
  Receive Date: 20070214
  Receipt Date: 20070207
  Transmission Date: 20070707
  Serious: Yes (Other)
  Sender: FDA-Public Use
  Company Number: GR-ROCHE-482051

PATIENT
  Age: 27 Year
  Sex: Female

DRUGS (7)
  1. BONVIVA [Suspect]
     Indication: DRUG USE FOR UNKNOWN INDICATION
     Dosage: FORM REPORTED AS F.C.TABS.
     Route: 048
     Dates: start: 20060628
  2. CORTISONE ACETATE [Concomitant]
  3. IMDUR [Concomitant]
  4. NORVASC [Concomitant]
  5. LIPITOR [Concomitant]
  6. BEROVENT [Concomitant]
     Route: 055
  7. IDEOS [Concomitant]

REACTIONS (1)
  - MALE PATTERN BALDNESS [None]
